FAERS Safety Report 6914838-X (Version None)
Quarter: 2010Q3

REPORT INFORMATION
  Report Type: 
  Country: None (occurrence: None)
  Receive Date: 20100804
  Receipt Date: 20100804
  Transmission Date: 20110219
  Serious: Yes (Hospitalization)
  Sender: FDA-Public Use
  Company Number: None

PATIENT
  Age: 71 Year
  Sex: Male

DRUGS (1)
  1. AZACITIDINE [Suspect]
     Dosage: 116.2 MG OTHER IV
     Route: 042
     Dates: start: 20100201, end: 20100206

REACTIONS (4)
  - ANAEMIA [None]
  - HYPOKALAEMIA [None]
  - MYELODYSPLASTIC SYNDROME [None]
  - RENAL FAILURE ACUTE [None]
